FAERS Safety Report 25703919 (Version 1)
Quarter: 2025Q3

REPORT INFORMATION
  Report Type: Spontaneous
  Country: JP (occurrence: JP)
  Receive Date: 20250820
  Receipt Date: 20250820
  Transmission Date: 20251020
  Serious: Yes (Hospitalization)
  Sender: AMGEN
  Company Number: JP-AMGEN-JPNSP2025164472

PATIENT
  Age: 63 Year
  Sex: Male
  Weight: 55 kg

DRUGS (6)
  1. BLINCYTO [Suspect]
     Active Substance: BLINATUMOMAB
     Indication: Acute lymphocytic leukaemia
     Dosage: 28 MICROGRAM, QD, DRIP INFUSION
     Route: 040
     Dates: start: 20250729, end: 20250731
  2. ATOVAQUONE [Concomitant]
     Active Substance: ATOVAQUONE
  3. URSODIOL [Concomitant]
     Active Substance: URSODIOL
  4. RAMELTEON [Concomitant]
     Active Substance: RAMELTEON
  5. FEBUXOSTAT [Concomitant]
     Active Substance: FEBUXOSTAT
  6. ACYCLOVIR [Concomitant]
     Active Substance: ACYCLOVIR

REACTIONS (2)
  - Altered state of consciousness [Recovered/Resolved]
  - Epilepsy [Recovered/Resolved]

NARRATIVE: CASE EVENT DATE: 20250731
